FAERS Safety Report 7148245-4 (Version None)
Quarter: 2010Q4

REPORT INFORMATION
  Report Type: 
  Country: None (occurrence: None)
  Receive Date: 20101209
  Receipt Date: 20101130
  Transmission Date: 20110411
  Serious: Yes (Other)
  Sender: FDA-Public Use
  Company Number: PHHY2010US81643

PATIENT
  Sex: Male

DRUGS (5)
  1. GLEEVEC [Suspect]
     Indication: CHRONIC MYELOID LEUKAEMIA
     Dosage: 400 MG, DAILY
     Route: 048
     Dates: start: 20100316
  2. INSULIN [Concomitant]
  3. METFORMIN [Concomitant]
  4. MORPHINE [Concomitant]
  5. CIPRO [Concomitant]

REACTIONS (6)
  - BLISTER [None]
  - BURNING SENSATION [None]
  - DIABETES MELLITUS [None]
  - ERYTHEMA [None]
  - INFECTION [None]
  - PAIN [None]
